FAERS Safety Report 6934861-9 (Version None)
Quarter: 2010Q3

REPORT INFORMATION
  Report Type: 
  Country: None (occurrence: None)
  Receive Date: 20100820
  Receipt Date: 20100806
  Transmission Date: 20110219
  Serious: Yes (Other)
  Sender: FDA-Public Use
  Company Number: PHFR2010GB01943

PATIENT
  Sex: Male

DRUGS (2)
  1. CLOZARIL [Suspect]
     Indication: SCHIZOPHRENIA
     Dosage: 200 MG + 400 MG
     Route: 048
     Dates: start: 20041223
  2. CLOZARIL [Suspect]
     Dosage: 500 MG
     Route: 048

REACTIONS (3)
  - DYSKINESIA [None]
  - FALL [None]
  - THERMAL BURN [None]
